FAERS Safety Report 9416722 (Version 1)
Quarter: 2013Q3

REPORT INFORMATION
  Report Type: Spontaneous
  Country: JP (occurrence: JP)
  Receive Date: 20130724
  Receipt Date: 20130724
  Transmission Date: 20140515
  Serious: Yes (Other)
  Sender: FDA-Public Use
  Company Number: JP-PFIZER INC-2013215855

PATIENT
  Age: 69 Year
  Sex: Female

DRUGS (1)
  1. CELECOX [Suspect]
     Dosage: 100 MG, 2X/DAY
     Route: 048
     Dates: start: 2013

REACTIONS (1)
  - Electrocardiogram QT prolonged [Unknown]
